FAERS Safety Report 6154273-8 (Version None)
Quarter: 2009Q2

REPORT INFORMATION
  Report Type: 
  Country: None (occurrence: None)
  Receive Date: 20090410
  Receipt Date: 20090402
  Transmission Date: 20091009
  Serious: Yes (Death, Life-Threatening, Hospitalization)
  Sender: FDA-Public Use
  Company Number: 2008-03412

PATIENT
  Age: 59 Year
  Sex: Female
  Weight: 54.3 kg

DRUGS (4)
  1. VELCADE [Suspect]
     Indication: MULTIPLE MYELOMA
     Dosage: 1.3 MG/M2, INTRAVENOUS
     Route: 042
     Dates: start: 20080909, end: 20080912
  2. SOLONDO [Concomitant]
  3. OXYCODONE HCL [Concomitant]
  4. NEURONTIN [Concomitant]

REACTIONS (6)
  - ASPIRATION [None]
  - GENERAL PHYSICAL HEALTH DETERIORATION [None]
  - GRAND MAL CONVULSION [None]
  - HEART RATE DECREASED [None]
  - PERIPHERAL MOTOR NEUROPATHY [None]
  - SUBDURAL HAEMORRHAGE [None]
